FAERS Safety Report 6893258-0 (Version None)
Quarter: 2010Q3

REPORT INFORMATION
  Report Type: 
  Country: None (occurrence: None)
  Receive Date: 20100731
  Receipt Date: 20090721
  Transmission Date: 20110219
  Serious: No
  Sender: FDA-Public Use
  Company Number: US-PFIZER INC-2009219620

PATIENT
  Sex: Female
  Weight: 58.957 kg

DRUGS (6)
  1. NORVASC [Suspect]
     Indication: CARDIAC DISORDER
     Dosage: UNK
  2. LIPITOR [Interacting]
     Indication: BLOOD CHOLESTEROL INCREASED
     Dosage: 20 MG, 1X/DAY
  3. GLUCOPHAGE [Interacting]
     Indication: TYPE 2 DIABETES MELLITUS
     Dosage: UNK
  4. RHYTHMOL [Interacting]
     Indication: CARDIAC DISORDER
  5. QUINAPRIL [Concomitant]
  6. ACETYLSALICYLIC ACID [Concomitant]

REACTIONS (6)
  - CARDIAC DISORDER [None]
  - DRUG INTERACTION [None]
  - FUNGAL INFECTION [None]
  - HYPOGLYCAEMIA [None]
  - MUSCLE DISORDER [None]
  - MUSCLE SPASMS [None]
